FAERS Safety Report 21387797 (Version 1)
Quarter: 2022Q3

REPORT INFORMATION
  Report Type: Report from Study
  Country: US (occurrence: US)
  Receive Date: 20220928
  Receipt Date: 20220928
  Transmission Date: 20221027
  Serious: Yes (Other)
  Sender: FDA-Public Use
  Company Number: US-NOVARTISPH-NVSC2022US215392

PATIENT
  Weight: 63.5 kg

DRUGS (3)
  1. COSENTYX [Suspect]
     Active Substance: SECUKINUMAB
     Indication: Psoriasis
     Dosage: 300 MG, QMO (2 150 MG SENSO-READY PENS)
     Route: 058
     Dates: start: 2019
  2. COSENTYX [Suspect]
     Active Substance: SECUKINUMAB
     Indication: Psoriatic arthropathy
     Dosage: 300 MG, QMO (2 150 MG SENSO-READY PENS)
     Route: 058
     Dates: start: 202205
  3. COSENTYX [Suspect]
     Active Substance: SECUKINUMAB
     Dosage: 300 MG, QMO (2 150 MG SENSO-READY PENS)
     Route: 058
     Dates: start: 202208

REACTIONS (5)
  - Skin haemorrhage [Unknown]
  - Condition aggravated [Unknown]
  - Skin fissures [Unknown]
  - Arthralgia [Unknown]
  - Therapeutic product effect incomplete [Unknown]
